FAERS Safety Report 25078052 (Version 1)
Quarter: 2025Q1

REPORT INFORMATION
  Report Type: Report from Study
  Country: US (occurrence: US)
  Receive Date: 20250314
  Receipt Date: 20250314
  Transmission Date: 20250408
  Serious: Yes (Hospitalization, Other)
  Sender: GILEAD
  Company Number: US-GILEAD-2025-0707074

PATIENT
  Sex: Female

DRUGS (45)
  1. AZTREONAM LYSINE [Suspect]
     Active Substance: AZTREONAM LYSINE
     Indication: Cystic fibrosis lung
     Dosage: INHALE 1 VIAL (75 MG) THREE TIMES DAILY. ALTERNATE FOR 28 DAYS ON AND 28 DAYS OFF.
     Route: 055
  2. EMGALITY [Concomitant]
     Active Substance: GALCANEZUMAB-GNLM
  3. TRESIBA [Concomitant]
     Active Substance: INSULIN DEGLUDEC
  4. SUMATRIPTAN SUCCINATE [Concomitant]
     Active Substance: SUMATRIPTAN SUCCINATE
  5. DESIPRAMINE HYDROCHLORIDE [Concomitant]
     Active Substance: DESIPRAMINE HYDROCHLORIDE
  6. COLISTIMETHATE [Concomitant]
     Active Substance: COLISTIMETHATE SODIUM
  7. FUROSEMIDE\POTASSIUM CHLORIDE [Concomitant]
     Active Substance: FUROSEMIDE\POTASSIUM CHLORIDE
  8. NITROGLYCERIN [Concomitant]
     Active Substance: NITROGLYCERIN
  9. HUMALOG [Concomitant]
     Active Substance: INSULIN LISPRO
  10. CREON [Concomitant]
     Active Substance: PANCRELIPASE AMYLASE\PANCRELIPASE LIPASE\PANCRELIPASE PROTEASE
  11. ZYRTEC [Concomitant]
     Active Substance: CETIRIZINE HYDROCHLORIDE
  12. PREMARIN [Concomitant]
     Active Substance: ESTROGENS, CONJUGATED
  13. AZITHROMYCIN [Concomitant]
     Active Substance: AZITHROMYCIN
  14. LEVALBUTEROL HYDROCHLORIDE [Concomitant]
     Active Substance: LEVALBUTEROL HYDROCHLORIDE
  15. CYANOCOBALAMIN [Concomitant]
     Active Substance: CYANOCOBALAMIN
  16. LEVEMIR [Concomitant]
     Active Substance: INSULIN DETEMIR
  17. LAMICTAL [Concomitant]
     Active Substance: LAMOTRIGINE
  18. SYMBICORT [Concomitant]
     Active Substance: BUDESONIDE\FORMOTEROL FUMARATE DIHYDRATE
  19. ALBUTEROL SULFATE [Concomitant]
     Active Substance: ALBUTEROL SULFATE
  20. DIAZEPAM [Concomitant]
     Active Substance: DIAZEPAM
  21. CARVEDILOL [Concomitant]
     Active Substance: CARVEDILOL
  22. SCOPOLAMINE N-OXIDE [Concomitant]
     Active Substance: SCOPOLAMINE N-OXIDE
  23. PANTOPRAZOLE SODIUM [Concomitant]
     Active Substance: PANTOPRAZOLE SODIUM
  24. DICYCLOMINE HYDROCHLORIDE [Concomitant]
     Active Substance: DICYCLOMINE HYDROCHLORIDE
  25. SPIRIVA RESPIMAT [Concomitant]
     Active Substance: TIOTROPIUM BROMIDE
  26. MONTELUKAST SODIUM [Concomitant]
     Active Substance: MONTELUKAST SODIUM
  27. LEVETIRACETAM [Concomitant]
     Active Substance: LEVETIRACETAM
  28. FENOFIBRATE [Concomitant]
     Active Substance: FENOFIBRATE
  29. AMLODIPINE BESYLATE [Concomitant]
     Active Substance: AMLODIPINE BESYLATE
  30. LEVOCETIRIZINE DIHYDROCHLORIDE [Concomitant]
     Active Substance: LEVOCETIRIZINE DIHYDROCHLORIDE
  31. RIBOFLAVIN [Concomitant]
     Active Substance: RIBOFLAVIN
  32. MECLIZINE HYDROCHLORIDE [Concomitant]
     Active Substance: MECLIZINE HYDROCHLORIDE
  33. CHOLINE [Concomitant]
     Active Substance: CHOLINE
  34. LOSARTAN POTASSIUM [Concomitant]
     Active Substance: LOSARTAN POTASSIUM
  35. SANCUSO [Concomitant]
     Active Substance: GRANISETRON
  36. HYOSCYAMINE SULFATE ER [Concomitant]
  37. EPIPEN [Concomitant]
     Active Substance: EPINEPHRINE
  38. GABAPENTIN [Concomitant]
     Active Substance: GABAPENTIN
  39. VITAMIN D2 [Concomitant]
     Active Substance: ERGOCALCIFEROL
  40. ADDERALL [Concomitant]
     Active Substance: AMPHETAMINE ASPARTATE\AMPHETAMINE SULFATE\DEXTROAMPHETAMINE SACCHARATE\DEXTROAMPHETAMINE SULFATE
  41. HYDROXYCHLOROQUINE SULFATE [Concomitant]
     Active Substance: HYDROXYCHLOROQUINE SULFATE
  42. NUVIGIL [Concomitant]
     Active Substance: ARMODAFINIL
  43. XIFAXAN [Concomitant]
     Active Substance: RIFAXIMIN
  44. NURTEC ODT [Concomitant]
     Active Substance: RIMEGEPANT SULFATE
  45. IRON [Concomitant]
     Active Substance: IRON

REACTIONS (3)
  - Infection [Unknown]
  - Femur fracture [Unknown]
  - Rehabilitation therapy [Recovered/Resolved]
